FAERS Safety Report 24668684 (Version 1)
Quarter: 2024Q4

REPORT INFORMATION
  Report Type: Spontaneous
  Country: GB (occurrence: GB)
  Receive Date: 20241127
  Receipt Date: 20241127
  Transmission Date: 20250115
  Serious: Yes (Other)
  Sender: AMGEN
  Company Number: GB-AMGEN-GBRSP2024232786

PATIENT
  Age: 54 Year
  Sex: Female

DRUGS (1)
  1. ADALIMUMAB [Suspect]
     Active Substance: ADALIMUMAB
     Indication: Crohn^s disease
     Dosage: 40 MILLIGRAM, Q2WK, AMGEVITA BRAND
     Route: 058
     Dates: start: 20240708, end: 20241014

REACTIONS (4)
  - Eye swelling [Unknown]
  - Dry eye [Unknown]
  - Fatigue [Unknown]
  - Eczema [Unknown]
